FAERS Safety Report 8696049 (Version 3)
Quarter: 2012Q4

REPORT INFORMATION
  Report Type: 
  Country: US (occurrence: US)
  Receive Date: 20120801
  Receipt Date: 20120912
  Transmission Date: 20130627
  Serious: No
  Sender: FDA-Public Use
  Company Number: US-BIOGENIDEC-2012BI026856

PATIENT
  Age: 52 Year
  Sex: Female

DRUGS (1)
  1. AVONEX [Suspect]
     Indication: MULTIPLE SCLEROSIS
     Route: 030
     Dates: start: 20120706, end: 20120720

REACTIONS (5)
  - Paralysis [Recovered/Resolved]
  - Hypopnoea [Recovered/Resolved]
  - Abasia [Unknown]
  - Influenza like illness [Recovered/Resolved]
  - Palpitations [Recovered/Resolved]
